FAERS Safety Report 8532962-5 (Version None)
Quarter: 2012Q3

REPORT INFORMATION
  Report Type: 
  Country: None (occurrence: None)
  Receive Date: 20120724
  Receipt Date: 20120716
  Transmission Date: 20120928
  Serious: Yes (Other)
  Sender: FDA-Public Use
  Company Number: CA-JNJFOC-20120214614

PATIENT
  Sex: Male
  Weight: 82 kg

DRUGS (10)
  1. GABAPENTIN [Concomitant]
     Route: 065
  2. FOLIC ACID [Concomitant]
     Route: 065
  3. REMICADE [Suspect]
     Indication: CROHN'S DISEASE
     Route: 042
     Dates: start: 20100107
  4. RISPERIDONE [Concomitant]
     Route: 065
  5. IMURAN [Concomitant]
     Route: 048
  6. DITROPAN XL [Concomitant]
     Route: 065
  7. ESCITALOPRAM [Concomitant]
     Route: 065
  8. METFORMIN HYDROCHLORIDE [Concomitant]
     Route: 065
  9. ALL OTHER THERAPEUTICS [Concomitant]
     Route: 065
  10. OXYBUTYNIN [Concomitant]
     Route: 065

REACTIONS (1)
  - ROAD TRAFFIC ACCIDENT [None]
